FAERS Safety Report 6478047-3 (Version None)
Quarter: 2009Q4

REPORT INFORMATION
  Report Type: 
  Country: None (occurrence: None)
  Receive Date: 20091203
  Receipt Date: 20091203
  Transmission Date: 20100525
  Serious: No
  Sender: FDA-Public Use
  Company Number: None

PATIENT
  Sex: Male
  Weight: 95.8 kg

DRUGS (2)
  1. CISPLATIN [Suspect]
     Dosage: 274 MG
     Dates: end: 20091117
  2. PACLITAXEL [Suspect]
     Dosage: 545 MG
     Dates: end: 20091117

REACTIONS (1)
  - WHITE BLOOD CELL COUNT DECREASED [None]
